FAERS Safety Report 18466307 (Version 1)
Quarter: 2020Q4

REPORT INFORMATION
  Report Type: Other
  Country: GB (occurrence: GB)
  Receive Date: 20201105
  Receipt Date: 20201105
  Transmission Date: 20210114
  Serious: No
  Sender: FDA-Public Use
  Company Number: GB-LUPIN PHARMACEUTICALS INC.-2020-05712

PATIENT
  Age: 60 Year
  Sex: Female
  Weight: 96 kg

DRUGS (9)
  1. LANSOPRAZOLE. [Concomitant]
     Active Substance: LANSOPRAZOLE
     Indication: ILL-DEFINED DISORDER
     Dosage: 1 DOSAGE FORM, QD
     Route: 065
     Dates: start: 20200129
  2. NOVORAPID [Concomitant]
     Active Substance: INSULIN ASPART
     Indication: ILL-DEFINED DISORDER
     Dosage: USE AS DIRECTED
     Dates: start: 20190723
  3. CYCLIZINE [Concomitant]
     Active Substance: CYCLIZINE
     Indication: ILL-DEFINED DISORDER
     Dosage: 1 PRN , MAX THREE TIMES PER DAY
     Route: 065
     Dates: start: 20200520
  4. SALBUTAMOL [Concomitant]
     Active Substance: ALBUTEROL
     Indication: ILL-DEFINED DISORDER
     Dosage: INHALE TWO DOSES TWO TO FOUR WHEN REQUIRED
     Dates: start: 20200807
  5. SERTRALINE [Concomitant]
     Active Substance: SERTRALINE HYDROCHLORIDE
     Indication: ILL-DEFINED DISORDER
     Dosage: TAKE 1 DAILY, QD
     Route: 065
     Dates: start: 20200129
  6. LANTUS [Concomitant]
     Active Substance: INSULIN GLARGINE
     Indication: ILL-DEFINED DISORDER
     Dosage: TO BE INJECTED BY S.C. INJECTION AS DIRECTED
     Route: 058
     Dates: start: 20200520
  7. CODEINE PHOSPHATE [Concomitant]
     Active Substance: CODEINE PHOSPHATE
     Indication: ILL-DEFINED DISORDER
     Dosage: TAKE ONE  OR TWO 4 TIMES/DAY,PRN
     Route: 065
     Dates: start: 20200807, end: 20200821
  8. RAMIPRIL. [Concomitant]
     Active Substance: RAMIPRIL
     Indication: ILL-DEFINED DISORDER
     Dosage: TAKE ONE DAILY, QD
     Route: 065
     Dates: start: 20200129
  9. SIMVASTATIN. [Suspect]
     Active Substance: SIMVASTATIN
     Indication: PRODUCT USED FOR UNKNOWN INDICATION
     Dosage: 1 DOSAGE FORM, QD (1 AT NIGHT)
     Route: 065
     Dates: start: 20200129

REACTIONS (2)
  - Nausea [Not Recovered/Not Resolved]
  - Pain [Unknown]

NARRATIVE: CASE EVENT DATE: 20200821
